FAERS Safety Report 21585819 (Version 1)
Quarter: 2022Q4

REPORT INFORMATION
  Report Type: Spontaneous
  Country: HR (occurrence: HR)
  Receive Date: 20221111
  Receipt Date: 20221111
  Transmission Date: 20230113
  Serious: Yes (Other)
  Sender: FDA-Public Use
  Company Number: HR-LUNDBECK-DKLU3054227

PATIENT
  Sex: Female

DRUGS (4)
  1. ESCITALOPRAM OXALATE [Interacting]
     Active Substance: ESCITALOPRAM OXALATE
     Indication: Depression
     Dosage: 10-20 MG/ DAY
  2. OXYCODONE [Interacting]
     Active Substance: OXYCODONE
     Indication: Back pain
     Dosage: 10 MG SLOW RELEASE OXYCODONE TWICE DAILY
  3. PYRIDOSTIGMINE [Concomitant]
     Active Substance: PYRIDOSTIGMINE
     Indication: Myasthenia gravis
  4. PREDNISONE [Concomitant]
     Active Substance: PREDNISONE
     Indication: Myasthenia gravis

REACTIONS (2)
  - Drug interaction [Unknown]
  - Dystonia [Not Recovered/Not Resolved]
